FAERS Safety Report 10551361 (Version 1)
Quarter: 2014Q4

REPORT INFORMATION
  Report Type: Spontaneous
  Country: GB (occurrence: GB)
  Receive Date: 20141029
  Receipt Date: 20141029
  Transmission Date: 20150529
  Serious: Yes (Other)
  Sender: FDA-Public Use
  Company Number: GB-TEVA-516897ISR

PATIENT
  Age: 92 Year
  Sex: Male

DRUGS (6)
  1. SIMVASTATIN. [Concomitant]
     Active Substance: SIMVASTATIN
     Dosage: 40 MILLIGRAM DAILY;
  2. ASPIRIN. [Concomitant]
     Active Substance: ASPIRIN
     Dosage: 75 MILLIGRAM DAILY;
  3. AMITRIPTYLINE [Suspect]
     Active Substance: AMITRIPTYLINE
     Indication: PAIN
     Dosage: 10 MILLIGRAM DAILY;
     Route: 048
     Dates: end: 20140828
  4. OMEPRAZOLE. [Concomitant]
     Active Substance: OMEPRAZOLE
     Dosage: 10 MILLIGRAM DAILY;
  5. CARBAMAZEPINE. [Suspect]
     Active Substance: CARBAMAZEPINE
     Indication: PAIN
     Dosage: 1200 MILLIGRAM DAILY;
     Route: 048
     Dates: end: 20140828
  6. CARBAMAZEPINE. [Suspect]
     Active Substance: CARBAMAZEPINE
     Indication: PAIN
     Dosage: 400 MILLIGRAM DAILY;
     Route: 048

REACTIONS (5)
  - Agitation [Unknown]
  - Confusional state [Recovered/Resolved]
  - Fall [Unknown]
  - Slow speech [Unknown]
  - Muscular weakness [Unknown]
